FAERS Safety Report 7750760-7 (Version None)
Quarter: 2011Q3

REPORT INFORMATION
  Report Type: 
  Country: None (occurrence: None)
  Receive Date: 20110914
  Receipt Date: 20110913
  Transmission Date: 20111222
  Serious: Yes (Death, Hospitalization)
  Sender: FDA-Public Use
  Company Number: US-BRISTOL-MYERS SQUIBB COMPANY-15852379

PATIENT
  Age: 61 Year
  Sex: Male
  Weight: 80 kg

DRUGS (32)
  1. FENTANYL [Concomitant]
     Route: 042
  2. ZOFRAN [Concomitant]
     Indication: VOMITING
  3. VANCOMYCIN [Concomitant]
     Route: 048
  4. FLAGYL [Concomitant]
     Dosage: ALSO ORAL
     Route: 042
  5. IPILIMUMAB [Suspect]
     Indication: MALIGNANT MELANOMA
     Route: 042
     Dates: start: 20110202, end: 20110405
  6. ONDANSETRON [Concomitant]
     Indication: NAUSEA
     Dosage: 1 DF: 4-8 MG TAB Q8HRS PRN INJ IV 4MG/2ML
     Route: 048
     Dates: start: 20110612
  7. METRONIDAZOLE [Concomitant]
     Dosage: ROA:IVPB
  8. TENOFOVIR DISOPROXIL FUMARATE [Concomitant]
     Route: 048
  9. LORAZEPAM [Concomitant]
     Indication: ANXIETY
     Dosage: 0.5-1 MG Q12HRS
     Route: 042
  10. OXYCODONE HCL [Concomitant]
     Dosage: 1DF:4-5MG 1-2 TABS S NEEEDED
     Route: 048
     Dates: start: 20110612
  11. PREDNISONE [Concomitant]
  12. PROCHLORPERAZINE [Concomitant]
     Dosage: INJ Q6HRS
     Route: 042
  13. SODIUM CHLORIDE [Concomitant]
     Route: 042
  14. KEPPRA [Concomitant]
     Indication: CONVULSION
     Dosage: 1 DF: 2 TAB 1000MG BID 500MG BID,
     Route: 048
  15. TRIAMCINOLONE [Concomitant]
     Dosage: 1 DF: 1 APPLICATION CREAM 80G
     Route: 061
  16. TYLENOL-500 [Concomitant]
     Indication: PAIN
  17. OCTREOTIDE ACETATE [Concomitant]
     Dosage: 1 INJ
     Dates: start: 20110612
  18. ZOFRAN [Concomitant]
     Indication: NAUSEA
  19. HEPARIN LOCK-FLUSH [Concomitant]
     Route: 042
  20. PREDNISONE [Concomitant]
     Dosage: TAB
     Route: 048
  21. RANITIDINE [Concomitant]
     Route: 048
  22. IMODIUM [Concomitant]
  23. BISACODYL SUPPOSITORY [Concomitant]
  24. SENNA [Concomitant]
  25. VIREAD [Concomitant]
     Route: 048
     Dates: start: 20110612
  26. FERROUS SULFATE TAB [Concomitant]
     Dosage: EC 324MG TAB
     Route: 048
  27. OMEPRAZOLE [Concomitant]
     Indication: PROPHYLAXIS
     Dosage: 1 DF: 1 CAP 20MG/D
     Route: 048
  28. MIDAZOLAM HCL [Concomitant]
     Route: 042
  29. DICYCLOMINE [Concomitant]
     Dosage: 1 TAB ,BEFORE MEAL.
     Route: 048
     Dates: start: 20110612
  30. MILK OF MAGNESIA TAB [Concomitant]
  31. HEPARIN SODIUM [Concomitant]
     Route: 058
  32. OXYGEN [Concomitant]

REACTIONS (7)
  - CLOSTRIDIAL INFECTION [None]
  - VOMITING [None]
  - ENTEROCOLITIS [None]
  - NAUSEA [None]
  - NEOPLASM PROGRESSION [None]
  - NEOPLASM MALIGNANT [None]
  - PAIN [None]
